FAERS Safety Report 15894082 (Version 1)
Quarter: 2019Q1

REPORT INFORMATION
  Report Type: Spontaneous
  Country: US (occurrence: US)
  Receive Date: 20190131
  Receipt Date: 20190131
  Transmission Date: 20190417
  Serious: No
  Sender: FDA-Public Use
  Company Number: US-TEVA-2019-US-997758

PATIENT
  Sex: Female

DRUGS (2)
  1. QUETIAPINE FUMARATETEVA [Suspect]
     Active Substance: QUETIAPINE FUMARATE
     Indication: SLEEP DISORDER
     Route: 048
  2. QUETIAPINE FUMARATETEVA [Suspect]
     Active Substance: QUETIAPINE FUMARATE
     Dosage: MORNING
     Route: 048

REACTIONS (2)
  - Insomnia [Unknown]
  - Product quality issue [Unknown]
